FAERS Safety Report 7756354-1 (Version None)
Quarter: 2011Q3

REPORT INFORMATION
  Report Type: 
  Country: None (occurrence: None)
  Receive Date: 20110916
  Receipt Date: 20110831
  Transmission Date: 20111222
  Serious: Yes (Hospitalization)
  Sender: FDA-Public Use
  Company Number: US-BAYER-201032457NA

PATIENT
  Age: 35 Year
  Sex: Female
  Weight: 138.32 kg

DRUGS (4)
  1. ADVIL LIQUI-GELS [Concomitant]
  2. MOTRIN [Concomitant]
  3. YAZ [Suspect]
     Dosage: UNK
     Route: 048
     Dates: start: 20030101, end: 20090101
  4. YASMIN [Suspect]
     Dosage: UNK
     Dates: start: 20030101, end: 20090101

REACTIONS (2)
  - PULMONARY EMBOLISM [None]
  - PULMONARY INFARCTION [None]
